FAERS Safety Report 4999295-5 (Version None)
Quarter: 2006Q2

REPORT INFORMATION
  Report Type: 
  Country: None (occurrence: None)
  Receive Date: 20060509
  Receipt Date: 20060410
  Transmission Date: 20061013
  Serious: Yes (Hospitalization)
  Sender: FDA-Public Use
  Company Number: 224654

PATIENT
  Age: 64 Year
  Sex: Male

DRUGS (14)
  1. AVASTIN [Suspect]
     Indication: COLORECTAL CANCER METASTATIC
     Dosage: 7.5 MG/KG, Q3W
  2. CAPECITABINE (CAPECITABINE) [Suspect]
     Indication: COLORECTAL CANCER METASTATIC
     Dosage: 850 MG/M2
  3. ERBITUX [Suspect]
     Indication: COLORECTAL CANCER METASTATIC
     Dosage: 250 MG/M2, Q3W
  4. OXALIPLATIN (OXALIPLATIN) [Suspect]
     Indication: COLORECTAL CANCER METASTATIC
     Dosage: 130 MG/M2, Q3W
  5. IMODIUM [Concomitant]
  6. ZOFRAN [Concomitant]
  7. ZINC (ZINC NOS) [Concomitant]
  8. ASCORBIC ACID [Concomitant]
  9. MVI (MULTIVITAMINS NOS) [Concomitant]
  10. METOPROLOL TARTRATE [Concomitant]
  11. HCTZ (HYDROCHLOROTHIAZIDE) [Concomitant]
  12. IBUPROFEN [Concomitant]
  13. COMPAZINE (PROCLORPERAZINE) [Concomitant]
  14. ATIVAN [Concomitant]

REACTIONS (6)
  - CHILLS [None]
  - DEHYDRATION [None]
  - DIARRHOEA [None]
  - DIZZINESS [None]
  - DYSPNOEA [None]
  - INFECTION [None]
